FAERS Safety Report 8275821-8 (Version None)
Quarter: 2012Q2

REPORT INFORMATION
  Report Type: 
  Country: None (occurrence: None)
  Receive Date: 20120410
  Receipt Date: 20120410
  Transmission Date: 20120825
  Serious: Yes (Other)
  Sender: FDA-Public Use
  Company Number: None

PATIENT

DRUGS (4)
  1. MIXED AMPHETAMINE SALTS 20MG [Suspect]
     Indication: ATTENTION DEFICIT/HYPERACTIVITY DISORDER
     Dosage: 20MG(X2) QAM PO
     Route: 048
     Dates: start: 20120208, end: 20120306
  2. ATORVASTATIN [Concomitant]
  3. SYMBICORT [Concomitant]
  4. FOCALIN [Concomitant]

REACTIONS (3)
  - ABDOMINAL PAIN [None]
  - PRODUCT SUBSTITUTION ISSUE [None]
  - HEADACHE [None]
